FAERS Safety Report 4802815-4 (Version None)
Quarter: 2005Q4

REPORT INFORMATION
  Report Type: 
  Country: None (occurrence: None)
  Receive Date: 20051019
  Receipt Date: 20051013
  Transmission Date: 20060501
  Serious: Yes (Disabling, Other)
  Sender: FDA-Public Use
  Company Number: GB-BOEHRINGER INGELHEIM PHARMACEUTICALS, INC.-2005-UK-02049UK

PATIENT
  Age: 62 Year
  Sex: Female

DRUGS (3)
  1. SPIRIVA [Suspect]
     Indication: CHRONIC OBSTRUCTIVE PULMONARY DISEASE
     Dosage: 1 CAPSULE DAILY
     Route: 055
     Dates: start: 20041229, end: 20050905
  2. SYMBICORT [Suspect]
     Indication: CHRONIC OBSTRUCTIVE PULMONARY DISEASE
     Dosage: 400/12 1 PUFF AM/PM
     Route: 055
     Dates: start: 20041215
  3. TERBUTALINE [Concomitant]
     Indication: CHRONIC OBSTRUCTIVE PULMONARY DISEASE
     Dosage: 500MCG PUFFS PRN
     Route: 055
     Dates: start: 20041115

REACTIONS (2)
  - BLOOD CREATINE PHOSPHOKINASE INCREASED [None]
  - MUSCLE SPASMS [None]
